FAERS Safety Report 21255377 (Version 2)
Quarter: 2022Q3

REPORT INFORMATION
  Report Type: Report from Study
  Country: KR (occurrence: KR)
  Receive Date: 20220825
  Receipt Date: 20220913
  Transmission Date: 20221027
  Serious: Yes (Hospitalization)
  Sender: FDA-Public Use
  Company Number: KR-002147023-NVSC2022KR162679

PATIENT

DRUGS (3)
  1. RUXOLITINIB [Suspect]
     Active Substance: RUXOLITINIB
     Indication: Primary myelofibrosis
     Dosage: 40 MG, QD
     Route: 048
     Dates: start: 20220126
  2. RUXOLITINIB [Suspect]
     Active Substance: RUXOLITINIB
     Dosage: 20 MG, BID
     Route: 048
     Dates: start: 20220126
  3. ASPIRIN [Concomitant]
     Active Substance: ASPIRIN
     Indication: Prophylaxis
     Dosage: 100 MG, QD
     Route: 048
     Dates: start: 20220126

REACTIONS (4)
  - Anaemia [Recovered/Resolved]
  - Herpes zoster [Recovered/Resolved with Sequelae]
  - Inappropriate schedule of product administration [Unknown]
  - Post herpetic neuralgia [Unknown]

NARRATIVE: CASE EVENT DATE: 20220518
